FAERS Safety Report 9500263 (Version 1)
Quarter: 2013Q1

REPORT INFORMATION
  Report Type: Spontaneous
  Country: US (occurrence: None)
  Receive Date: 20130118
  Receipt Date: 20130118
  Transmission Date: 20140127
  Serious: Yes (Hospitalization)
  Sender: FDA-Public Use
  Company Number: A-US2012-59595

PATIENT
  Age: 43 Year
  Sex: Female

DRUGS (4)
  1. TRACLEER [Suspect]
     Route: 048
     Dates: start: 20091007
  2. REVATIO (SILDENAFIL CITRATE) (UNKNOWN) (SILDENAFIL) [Concomitant]
  3. COUMADIN (WARFARIN SODIUM) [Concomitant]
  4. OXYGEN (OXYGEN) [Concomitant]

REACTIONS (1)
  - Pneumonia [None]
